FAERS Safety Report 9333006 (Version 2)
Quarter: 2013Q2

REPORT INFORMATION
  Report Type: Spontaneous
  Country: US (occurrence: US)
  Receive Date: 20130606
  Receipt Date: 20130627
  Transmission Date: 20140414
  Serious: No
  Sender: FDA-Public Use
  Company Number: US-PFIZER INC-2013141750

PATIENT
  Age: 70 Year
  Sex: Female
  Weight: 76.6 kg

DRUGS (3)
  1. LEVOXYL [Suspect]
     Indication: THYROID DISORDER
     Dosage: 0.05 MG, 1X/DAY
  2. LEVOXYL [Suspect]
     Dosage: 0.1 MG, 1X/DAY, SIX DAYS/WEEK
  3. FORADIL [Concomitant]
     Indication: ASTHMA
     Dosage: 12 UG, SPRAY 2X/DAY

REACTIONS (1)
  - Blood test abnormal [Unknown]
